FAERS Safety Report 12098624 (Version 1)
Quarter: 2016Q1

REPORT INFORMATION
  Report Type: Spontaneous
  Country: US (occurrence: US)
  Receive Date: 20160222
  Receipt Date: 20160222
  Transmission Date: 20160526
  Serious: Yes (Death, Other)
  Sender: FDA-Public Use
  Company Number: US-THE MEDICINES COMPANY-US-MDCO-16-00032

PATIENT
  Age: 62 Year
  Sex: Female

DRUGS (6)
  1. BRILINTA [Concomitant]
     Active Substance: TICAGRELOR
     Indication: PERCUTANEOUS CORONARY INTERVENTION
     Dosage: NOT REPORTED
     Route: 048
  2. KENGREAL [Suspect]
     Active Substance: CANGRELOR
     Indication: PRODUCT USED FOR UNKNOWN INDICATION
     Dosage: NOT REPORTED
     Route: 041
  3. LEVOPHED [Concomitant]
     Active Substance: NOREPINEPHRINE BITARTRATE
     Indication: PERCUTANEOUS CORONARY INTERVENTION
     Dosage: NOT REPORTED
  4. FENTANYL. [Concomitant]
     Active Substance: FENTANYL
     Indication: PERCUTANEOUS CORONARY INTERVENTION
     Dosage: NOT REPORTED
  5. AMIODARONE [Concomitant]
     Active Substance: AMIODARONE
     Indication: PERCUTANEOUS CORONARY INTERVENTION
     Dosage: NOT REPORTED
  6. ANGIOMAX [Suspect]
     Active Substance: BIVALIRUDIN
     Indication: PERCUTANEOUS CORONARY INTERVENTION
     Dosage: NOT REPORTED

REACTIONS (4)
  - Retroperitoneal haemorrhage [Unknown]
  - Lung infiltration [Unknown]
  - Haemoglobin decreased [Recovered/Resolved]
  - Pneumothorax [Fatal]
